FAERS Safety Report 5411342-5 (Version None)
Quarter: 2007Q3

REPORT INFORMATION
  Report Type: 
  Country: None (occurrence: None)
  Receive Date: 20070810
  Receipt Date: 20070726
  Transmission Date: 20080115
  Serious: Yes (Hospitalization)
  Sender: FDA-Public Use
  Company Number: PHHO2007SG12350

PATIENT
  Age: 36 Year
  Sex: Female
  Weight: 51.7 kg

DRUGS (2)
  1. CERTICAN [Suspect]
     Indication: RENAL TRANSPLANT
     Dosage: 360 MG, BID
     Route: 048
     Dates: start: 20060312
  2. NEORAL [Concomitant]
     Indication: RENAL TRANSPLANT
     Dosage: 100 MG, BID
     Dates: start: 20070718

REACTIONS (4)
  - BRAIN MASS [None]
  - EPSTEIN-BARR VIRUS ANTIBODY POSITIVE [None]
  - HEADACHE [None]
  - INTRACRANIAL PRESSURE INCREASED [None]
